FAERS Safety Report 9443139 (Version 1)
Quarter: 2013Q3

REPORT INFORMATION
  Report Type: Spontaneous
  Country: BR (occurrence: BR)
  Receive Date: 20130806
  Receipt Date: 20130806
  Transmission Date: 20140515
  Serious: Yes (Hospitalization)
  Sender: FDA-Public Use
  Company Number: BR-SANOFI-AVENTIS-2013SA036879

PATIENT
  Age: 64 Year
  Sex: Female
  Weight: 60 kg

DRUGS (12)
  1. ARAVA [Suspect]
     Indication: OSTEOARTHRITIS
     Dosage: STRENGTH: 20MG
     Route: 048
     Dates: start: 201212, end: 20130322
  2. ACYCLOVIR [Suspect]
     Indication: MOUTH ULCERATION
     Route: 042
     Dates: start: 20130325, end: 20130401
  3. VANCOMYCIN [Suspect]
     Indication: INFECTION
     Route: 065
     Dates: start: 20130322, end: 20130330
  4. METHOTREXATE [Suspect]
     Indication: PRODUCT USED FOR UNKNOWN INDICATION
     Dosage: STRENGTH: 2.5 MG
     Route: 048
     Dates: start: 201212, end: 20130322
  5. ADALIMUMAB [Suspect]
     Indication: PRODUCT USED FOR UNKNOWN INDICATION
     Dosage: FREQUENCY: Q15D?1 AMPOULE
     Route: 065
     Dates: start: 201212, end: 20130305
  6. ATENOLOL [Concomitant]
     Dosage: STRENGTH: 25MG
  7. HYDROCHLOROTHIAZIDE [Concomitant]
     Dosage: STRENGTH: 25MG
  8. ENALAPRIL MALEATE [Concomitant]
     Dosage: STRENGTH: 20MG
  9. PREDNISONE [Concomitant]
     Dosage: STRENGTH: 20MG
  10. CALCIUM CARBONATE/COLECALCIFEROL [Concomitant]
     Dosage: STRENGTH: 600MG+400MG
  11. THIAMINE HYDROCHLORIDE [Concomitant]
     Dosage: STRENGTH: 300MG
  12. FOLIC ACID [Concomitant]
     Dosage: STRENGTH: 5MG

REACTIONS (13)
  - Febrile neutropenia [Unknown]
  - Generalised oedema [Unknown]
  - Lip oedema [Unknown]
  - Renal impairment [Recovering/Resolving]
  - Nephropathy [Unknown]
  - Pancytopenia [Recovering/Resolving]
  - Unevaluable event [Unknown]
  - Septic shock [Unknown]
  - Hypertension [Unknown]
  - Pyrexia [Unknown]
  - Mouth ulceration [Unknown]
  - Odynophagia [Unknown]
  - Incorrect dose administered [Unknown]
